FAERS Safety Report 5211698-2 (Version None)
Quarter: 2007Q1

REPORT INFORMATION
  Report Type: 
  Country: None (occurrence: None)
  Receive Date: 20070116
  Receipt Date: 20060829
  Transmission Date: 20070707
  Serious: Yes (Death, Life-Threatening, Other)
  Sender: FDA-Public Use
  Company Number: 2006-03-2398

PATIENT
  Age: 56 Year
  Sex: Male
  Weight: 65.7716 kg

DRUGS (9)
  1. INTEGRILIN [Suspect]
     Indication: DRUG USE FOR UNKNOWN INDICATION
     Dosage: 11 ML; QH; IV
     Route: 042
     Dates: start: 20060405, end: 20060405
  2. ANGIOMAX [Suspect]
     Indication: DRUG USE FOR UNKNOWN INDICATION
     Dosage: 11 ML; QH; IV
     Route: 042
     Dates: start: 20060405, end: 20060405
  3. PLAVIX (CON.) [Concomitant]
  4. ANGIOMAX (CON.) [Concomitant]
  5. COUMADIN (CON.) [Concomitant]
  6. VANCOMYCIN (CON.) [Concomitant]
  7. LEVAQUIN (CON.) [Concomitant]
  8. LOPRESSOR (CON.) [Concomitant]
  9. LOVENOX (CON.) [Concomitant]

REACTIONS (4)
  - CARDIO-RESPIRATORY ARREST [None]
  - INTERNATIONAL NORMALISED RATIO INCREASED [None]
  - POST PROCEDURAL HAEMORRHAGE [None]
  - PULMONARY EMBOLISM [None]
